APPROVED DRUG PRODUCT: PAXIL
Active Ingredient: PAROXETINE HYDROCHLORIDE
Strength: EQ 20MG BASE **Federal Register determination that product was not discontinued or withdrawn for safety or effectiveness reasons**
Dosage Form/Route: CAPSULE;ORAL
Application: N020885 | Product #002
Applicant: APOTEX INC
Approved: Oct 9, 1998 | RLD: Yes | RS: No | Type: DISCN